FAERS Safety Report 9459907 (Version 2)
Quarter: 2013Q3

REPORT INFORMATION
  Report Type: Spontaneous
  Country: BR (occurrence: None)
  Receive Date: 20130812
  Receipt Date: 20130913
  Transmission Date: 20140515
  Serious: Yes (Other)
  Sender: FDA-Public Use
  Company Number: SYM-2013-07405

PATIENT
  Age: 42 Year
  Sex: Female

DRUGS (3)
  1. ZYBAN [Suspect]
     Indication: SMOKING CESSATION THERAPY
     Route: 048
  2. DIPYRONE (METAMIZOLE SODIUM) (METAMIZOLE SODIUM) [Concomitant]
  3. CEWIN (ASCORBIC ACID) (ASCORBIC ACID) [Concomitant]

REACTIONS (11)
  - Stevens-Johnson syndrome [None]
  - Hypersensitivity [None]
  - Syncope [None]
  - Fall [None]
  - Lip injury [None]
  - Nasal oedema [None]
  - Aphagia [None]
  - Conjunctivitis bacterial [None]
  - Conjunctivitis viral [None]
  - Onychomadesis [None]
  - Madarosis [None]
